FAERS Safety Report 9663853 (Version 1)
Quarter: 2013Q4

REPORT INFORMATION
  Report Type: Spontaneous
  Country: US (occurrence: US)
  Receive Date: 20131101
  Receipt Date: 20131101
  Transmission Date: 20140711
  Serious: Yes (Other)
  Sender: FDA-Public Use
  Company Number: US-TEVA-441712USA

PATIENT
  Age: 13 Year
  Sex: Female

DRUGS (1)
  1. CLARAVIS [Suspect]
     Dates: start: 20130125, end: 20131018

REACTIONS (2)
  - Ligament rupture [Unknown]
  - Drug administration error [Unknown]
